FAERS Safety Report 25733743 (Version 1)
Quarter: 2025Q3

REPORT INFORMATION
  Report Type: Spontaneous
  Country: US (occurrence: US)
  Receive Date: 20250828
  Receipt Date: 20250828
  Transmission Date: 20251021
  Serious: No
  Sender: Haleon PLC
  Company Number: US-HALEON-2259966

PATIENT

DRUGS (2)
  1. TUMS EXTRA STRENGTH SUGAR-FREE [Suspect]
     Active Substance: CALCIUM CARBONATE
     Indication: Abdominal pain
  2. TUMS EXTRA STRENGTH SUGAR-FREE [Suspect]
     Active Substance: CALCIUM CARBONATE
     Indication: Flatulence

REACTIONS (2)
  - Drug effective for unapproved indication [Unknown]
  - Product use in unapproved indication [Unknown]
